FAERS Safety Report 8378175-1 (Version None)
Quarter: 2012Q2

REPORT INFORMATION
  Report Type: 
  Country: None (occurrence: None)
  Receive Date: 20120522
  Receipt Date: 20120516
  Transmission Date: 20120825
  Serious: No
  Sender: FDA-Public Use
  Company Number: US-PFIZER INC-2012119482

PATIENT
  Sex: Female
  Weight: 68.027 kg

DRUGS (4)
  1. CYMBALTA [Suspect]
     Indication: FIBROMYALGIA
     Dosage: 60 MG, DAILY
  2. NAPROXEN (ALEVE) [Concomitant]
     Dosage: UNK
  3. LYRICA [Suspect]
     Indication: FIBROMYALGIA
     Dosage: 75 MG, 2X/DAY
     Route: 048
     Dates: start: 20120101, end: 20120501
  4. CYMBALTA [Suspect]
     Indication: DEPRESSION

REACTIONS (6)
  - MUSCLE RIGIDITY [None]
  - FORMICATION [None]
  - ANAEMIA [None]
  - PARAESTHESIA [None]
  - INSOMNIA [None]
  - TREMOR [None]
